FAERS Safety Report 10068676 (Version 1)
Quarter: 2014Q2

REPORT INFORMATION
  Report Type: Spontaneous
  Country: US (occurrence: US)
  Receive Date: 20140409
  Receipt Date: 20140409
  Transmission Date: 20141212
  Serious: Yes (Other)
  Sender: FDA-Public Use
  Company Number: PHEH2014US006749

PATIENT
  Sex: Male

DRUGS (1)
  1. VALSARTAN [Suspect]
     Indication: BLOOD TRIGLYCERIDES ABNORMAL
     Dosage: UNK UKN, UNK

REACTIONS (2)
  - Fall [Unknown]
  - Drug ineffective [Unknown]
